FAERS Safety Report 4463503-X (Version None)
Quarter: 2004Q3

REPORT INFORMATION
  Report Type: 
  Country: None (occurrence: None)
  Receive Date: 20040928
  Receipt Date: 20040914
  Transmission Date: 20050211
  Serious: Yes (Life-Threatening)
  Sender: FDA-Public Use
  Company Number: 04H-044-0273475-00

PATIENT
  Age: 39 Year
  Sex: Male
  Weight: 54.9 kg

DRUGS (8)
  1. SUCCINYLCHOLINE CHLORIDE [Suspect]
     Indication: ANAESTHESIA
     Dosage: 100 MG, ONCE; 125 MG, ONCE
  2. FENTANYL [Suspect]
     Indication: INDUCTION OF ANAESTHESIA
     Dosage: 0.25 MG  DURING FIRST SURGERY; 0.20 MG DURING SECOND SURGERY; 0.20 DURING THIRD SURGERY
  3. DIAZEPAM [Concomitant]
  4. NITROUS OXIDE [Concomitant]
  5. OXYGEN [Concomitant]
  6. PANCURONIUM [Concomitant]
  7. DROPERIDOL [Concomitant]
  8. THIOPENTAL SODIUM [Concomitant]

REACTIONS (3)
  - BRADYCARDIA [None]
  - CARDIAC ARREST [None]
  - DRUG INTERACTION [None]
